FAERS Safety Report 19951232 (Version 1)
Quarter: 2021Q4

REPORT INFORMATION
  Report Type: Other
  Country: US (occurrence: US)
  Receive Date: 20211014
  Receipt Date: 20211014
  Transmission Date: 20220303
  Serious: Yes (Life-Threatening, Hospitalization, Other)
  Sender: FDA-Public Use
  Company Number: US-ROCHE-2929729

PATIENT
  Age: 77 Year
  Sex: Female

DRUGS (1)
  1. ATEZOLIZUMAB [Suspect]
     Active Substance: ATEZOLIZUMAB
     Indication: Non-small cell lung cancer recurrent
     Route: 041

REACTIONS (4)
  - Coagulopathy [Recovering/Resolving]
  - Sepsis [Recovered/Resolved]
  - Cytokine release syndrome [Recovering/Resolving]
  - Cytopenia [Recovering/Resolving]
